FAERS Safety Report 23842275 (Version 1)
Quarter: 2024Q2

REPORT INFORMATION
  Report Type: Other
  Country: US (occurrence: None)
  Receive Date: 20240510
  Receipt Date: 20240510
  Transmission Date: 20240716
  Serious: Yes (Death, Other)
  Sender: FDA-Public Use
  Company Number: US-ROCHE-3559091

PATIENT

DRUGS (3)
  1. ATEZOLIZUMAB [Suspect]
     Active Substance: ATEZOLIZUMAB
     Indication: Non-small cell lung cancer
     Route: 065
  2. PEMBROLIZUMAB [Suspect]
     Active Substance: PEMBROLIZUMAB
     Indication: Non-small cell lung cancer
     Route: 065
  3. NIVOLUMAB [Suspect]
     Active Substance: NIVOLUMAB
     Indication: Non-small cell lung cancer
     Route: 065

REACTIONS (20)
  - Pneumonitis [Fatal]
  - Diarrhoea [Unknown]
  - Colitis [Unknown]
  - Arthralgia [Unknown]
  - Arthritis [Unknown]
  - Amylase increased [Unknown]
  - Lipase increased [Unknown]
  - Rhabdomyolysis [Unknown]
  - Hypothyroidism [Unknown]
  - Rash [Unknown]
  - Pruritus [Unknown]
  - Skin irritation [Unknown]
  - Fatigue [Unknown]
  - Nausea [Unknown]
  - Nephritis [Unknown]
  - Myalgia [Unknown]
  - Aspartate aminotransferase increased [Unknown]
  - Alanine aminotransferase increased [Unknown]
  - Oedema [Unknown]
  - Conjunctivitis [Unknown]
